FAERS Safety Report 23539583 (Version 3)
Quarter: 2024Q2

REPORT INFORMATION
  Report Type: Report from Study
  Country: MX (occurrence: MX)
  Receive Date: 20240219
  Receipt Date: 20240401
  Transmission Date: 20240716
  Serious: Yes (Hospitalization, Other)
  Sender: FDA-Public Use
  Company Number: MX-TAKEDA-2022TUS011612

PATIENT
  Age: 18 Year
  Sex: Male

DRUGS (12)
  1. ICATIBANT [Suspect]
     Active Substance: ICATIBANT ACETATE
     Indication: Hereditary angioedema
     Dosage: UNK
     Route: 058
  2. ICATIBANT [Suspect]
     Active Substance: ICATIBANT ACETATE
     Indication: Hereditary angioedema
     Dosage: UNK
     Route: 058
  3. ICATIBANT [Suspect]
     Active Substance: ICATIBANT ACETATE
     Dosage: UNK
     Route: 058
     Dates: start: 20210304
  4. ICATIBANT [Suspect]
     Active Substance: ICATIBANT ACETATE
     Dosage: UNK
     Route: 058
     Dates: start: 20210304
  5. ICATIBANT [Suspect]
     Active Substance: ICATIBANT ACETATE
     Dosage: 1 DOSAGE FORM
     Route: 058
  6. ICATIBANT [Suspect]
     Active Substance: ICATIBANT ACETATE
     Dosage: 1 DOSAGE FORM
     Route: 058
  7. ICATIBANT [Suspect]
     Active Substance: ICATIBANT ACETATE
     Dosage: UNK
     Route: 058
  8. ICATIBANT [Suspect]
     Active Substance: ICATIBANT ACETATE
     Dosage: UNK
     Route: 058
  9. TRANEXAMIC ACIDE [Concomitant]
     Dosage: 650 MILLIGRAM, Q12H
     Route: 065
  10. EPINASTINE [Concomitant]
     Active Substance: EPINASTINE
     Dosage: 20 MILLIGRAM, QD
     Route: 065
  11. MONTELUKAST [Concomitant]
     Active Substance: MONTELUKAST SODIUM
     Indication: Rhinitis
     Dosage: 1 DOSAGE FORM, QD
     Route: 065
  12. MONTELUKAST [Concomitant]
     Active Substance: MONTELUKAST SODIUM
     Indication: Dust allergy

REACTIONS (22)
  - Suicidal ideation [Unknown]
  - Jaw fracture [Unknown]
  - Blindness unilateral [Unknown]
  - Cerebral haemorrhage [Not Recovered/Not Resolved]
  - Forearm fracture [Not Recovered/Not Resolved]
  - Craniofacial fracture [Recovered/Resolved]
  - Skull fracture [Not Recovered/Not Resolved]
  - Hand fracture [Not Recovered/Not Resolved]
  - Pneumocephalus [Not Recovered/Not Resolved]
  - Road traffic accident [Recovering/Resolving]
  - Choroidal effusion [Unknown]
  - Hypersomnia [Not Recovered/Not Resolved]
  - Feeling of despair [Unknown]
  - Stress [Unknown]
  - Eye injury [Unknown]
  - Mood altered [Not Recovered/Not Resolved]
  - Limb injury [Recovered/Resolved]
  - Skin laceration [Recovered/Resolved]
  - Dizziness [Unknown]
  - Product availability issue [Unknown]
  - Incorrect dose administered [Unknown]
  - Expired product administered [Unknown]

NARRATIVE: CASE EVENT DATE: 20221216
